FAERS Safety Report 20141287 (Version 1)
Quarter: 2021Q4

REPORT INFORMATION
  Report Type: Spontaneous
  Country: US (occurrence: US)
  Receive Date: 20211202
  Receipt Date: 20211202
  Transmission Date: 20220303
  Serious: Yes (Other)
  Sender: FDA-Public Use
  Company Number: US-SA-2021SA400322

PATIENT
  Age: 49 Year
  Sex: Female

DRUGS (2)
  1. DOCETAXEL [Suspect]
     Active Substance: DOCETAXEL
     Indication: Synovial sarcoma metastatic
     Dosage: UNK
  2. GEMCITABINE HYDROCHLORIDE [Suspect]
     Active Substance: GEMCITABINE HYDROCHLORIDE
     Indication: Synovial sarcoma metastatic
     Dosage: UNK

REACTIONS (4)
  - Metastases to pancreas [Unknown]
  - Synovial sarcoma metastatic [Unknown]
  - Disease progression [Unknown]
  - Off label use [Unknown]
